FAERS Safety Report 24091582 (Version 1)
Quarter: 2024Q3

REPORT INFORMATION
  Report Type: Spontaneous
  Country: US (occurrence: None)
  Receive Date: 20240714
  Receipt Date: 20240714
  Transmission Date: 20241016
  Serious: Yes (Death)
  Sender: Public
  Company Number: None

PATIENT
  Age: 75 Year
  Sex: Female
  Weight: 130.5 kg

DRUGS (1)
  1. INSULIN LISPRO [Suspect]
     Active Substance: INSULIN LISPRO
     Indication: Diabetes mellitus
     Dates: start: 20230722

REACTIONS (7)
  - Injection site pain [None]
  - Nausea [None]
  - Headache [None]
  - Cardio-respiratory arrest [None]
  - Choking [None]
  - Vomiting [None]
  - Syncope [None]

NARRATIVE: CASE EVENT DATE: 20230724
